FAERS Safety Report 12054100 (Version 1)
Quarter: 2016Q1

REPORT INFORMATION
  Report Type: Spontaneous
  Country: US (occurrence: US)
  Receive Date: 20160209
  Receipt Date: 20160209
  Transmission Date: 20160526
  Serious: No
  Sender: FDA-Public Use
  Company Number: US-SA-2016SA011639

PATIENT
  Age: 75 Year
  Sex: Male

DRUGS (5)
  1. PRALUENT [Suspect]
     Active Substance: ALIROCUMAB
     Indication: MYOCARDIAL ISCHAEMIA
     Route: 058
     Dates: start: 201509, end: 201601
  2. ALIROCUMAB PREFILLED PEN [Concomitant]
     Active Substance: ALIROCUMAB
     Dates: start: 201509, end: 201601
  3. PRALUENT [Suspect]
     Active Substance: ALIROCUMAB
     Indication: CEREBROVASCULAR STENOSIS
     Route: 058
     Dates: start: 201509, end: 201601
  4. PRALUENT [Suspect]
     Active Substance: ALIROCUMAB
     Indication: EMBOLISM ARTERIAL
     Route: 058
     Dates: start: 201509, end: 201601
  5. PRALUENT [Suspect]
     Active Substance: ALIROCUMAB
     Indication: TYPE IIA HYPERLIPIDAEMIA
     Route: 058
     Dates: start: 201509, end: 201601

REACTIONS (2)
  - Unevaluable event [Unknown]
  - Myalgia [Unknown]
